FAERS Safety Report 16688709 (Version 1)
Quarter: 2019Q3

REPORT INFORMATION
  Report Type: Spontaneous
  Country: PL (occurrence: PL)
  Receive Date: 20190809
  Receipt Date: 20190809
  Transmission Date: 20191004
  Serious: Yes (Other)
  Sender: FDA-Public Use
  Company Number: PL-PFIZER INC-2019336009

PATIENT
  Age: 75 Year
  Sex: Female
  Weight: 63 kg

DRUGS (10)
  1. SUTENT [Suspect]
     Active Substance: SUNITINIB MALATE
     Indication: RENAL CANCER
     Dosage: 50 MG, DAILY
     Route: 048
     Dates: start: 20150305, end: 20150514
  2. KALDYUM [Concomitant]
     Active Substance: POTASSIUM CHLORIDE
     Dosage: 1 X 1 TABL.
  3. TRITACE [Concomitant]
     Active Substance: RAMIPRIL
     Dosage: 1 TABL. AD HOC
  4. BISOCARD [Concomitant]
     Active Substance: BISOPROLOL
     Dosage: 1 X 1 TABL.
  5. FUROSEMIDE. [Concomitant]
     Active Substance: FUROSEMIDE
     Dosage: 1 X 1 TABL.
  6. CAPTOPRIL. [Concomitant]
     Active Substance: CAPTOPRIL
     Dosage: 1 TABL. AD HOC
  7. ALDAN [AMLODIPINE BESILATE] [Concomitant]
     Dosage: 1 X 1 TABL.
  8. AVEDOL [Concomitant]
     Active Substance: CARVEDILOL
     Dosage: 1 X 1 TABL.
  9. LOPERAMIDE [Concomitant]
     Active Substance: LOPERAMIDE
     Dosage: 1 TABL. AD HOC
  10. CLEXANE [Concomitant]
     Active Substance: ENOXAPARIN SODIUM
     Dosage: 1 X 1 TABL.

REACTIONS (11)
  - Anaemia [Recovered/Resolved]
  - Hypertension [Recovered/Resolved]
  - Night sweats [Recovered/Resolved]
  - Decreased appetite [Recovered/Resolved]
  - Thrombocytosis [Recovered/Resolved]
  - Pain in extremity [Recovered/Resolved]
  - Syncope [Unknown]
  - Suffocation feeling [Recovered/Resolved]
  - Diarrhoea [Recovered/Resolved]
  - Vomiting [Recovered/Resolved]
  - Fatigue [Recovered/Resolved]

NARRATIVE: CASE EVENT DATE: 20150305
